FAERS Safety Report 5529973-0 (Version None)
Quarter: 2007Q4

REPORT INFORMATION
  Report Type: 
  Country: None (occurrence: None)
  Receive Date: 20071129
  Receipt Date: 20071010
  Transmission Date: 20080405
  Serious: No
  Sender: FDA-Public Use
  Company Number: US-ABBOTT-07P-163-0420319-00

PATIENT
  Sex: Female
  Weight: 74.91 kg

DRUGS (4)
  1. MERIDIA [Suspect]
     Indication: WEIGHT CONTROL
     Route: 048
     Dates: start: 20071008, end: 20071008
  2. MERIDIA [Suspect]
     Route: 048
     Dates: start: 20070905, end: 20071007
  3. LEVOTHYROXINE SODIUM [Concomitant]
     Indication: HYPOTHYROIDISM
     Route: 048
     Dates: start: 19990101
  4. JANUVIA [Concomitant]
     Indication: INSULIN RESISTANCE
     Route: 048
     Dates: start: 20050101

REACTIONS (4)
  - ASTHENIA [None]
  - HEADACHE [None]
  - SINUS HEADACHE [None]
  - VOMITING [None]
